FAERS Safety Report 5581443-X (Version None)
Quarter: 2007Q4

REPORT INFORMATION
  Report Type: 
  Country: None (occurrence: None)
  Receive Date: 20071231
  Receipt Date: 20071231
  Transmission Date: 20080405
  Serious: Yes (Other)
  Sender: FDA-Public Use
  Company Number: None

PATIENT
  Age: 35 Year
  Sex: Male
  Weight: 80.7403 kg

DRUGS (1)
  1. CHANTIX [Suspect]
     Indication: SMOKING CESSATION THERAPY
     Dosage: 1MG  TWICE DAILY  PO
     Route: 048
     Dates: start: 20071201, end: 20071223

REACTIONS (4)
  - ANGER [None]
  - DECREASED INTEREST [None]
  - DEPRESSION [None]
  - IRRITABILITY [None]
